FAERS Safety Report 4999280-3 (Version None)
Quarter: 2006Q2

REPORT INFORMATION
  Report Type: 
  Country: None (occurrence: None)
  Receive Date: 20060511
  Receipt Date: 20060315
  Transmission Date: 20061013
  Serious: Yes (Other)
  Sender: FDA-Public Use
  Company Number: PHEH2006US03490

PATIENT
  Age: 74 Year
  Sex: Male
  Weight: 131.97 kg

DRUGS (15)
  1. COMTAN [Suspect]
     Indication: PARKINSON'S DISEASE
     Dosage: 200 MG, TID
     Route: 048
     Dates: start: 20060131
  2. HYDROXYUREA [Concomitant]
     Dosage: 500 MG, TID
     Route: 048
  3. HYDROXYUREA [Concomitant]
     Dosage: 500 MG, BID
     Route: 048
     Dates: start: 20060505
  4. HYDROXYUREA [Concomitant]
     Dosage: 500 MG, TID
     Route: 048
  5. LIPITOR                                 /NET/ [Concomitant]
     Indication: HYPERLIPIDAEMIA
     Dosage: 20 MG, QD
     Route: 048
  6. SINEMET [Suspect]
     Dosage: 50/200, TID
     Route: 048
  7. METFORMIN [Concomitant]
     Indication: DIABETES MELLITUS
     Dosage: 1000 MG, BID
     Route: 048
  8. LEVOTHYROXINE SODIUM [Concomitant]
     Indication: HYPOTHYROIDISM
     Dosage: 0.05 MG, QD
     Route: 048
  9. LASIX [Concomitant]
     Indication: FLUID RETENTION
     Dosage: 40 MG, QD
     Route: 048
  10. POTASSIUM [Concomitant]
     Dosage: 10 MEQ WITH LASIX
     Route: 048
  11. DARVOCET-N 100 [Concomitant]
     Indication: PAIN
     Dosage: 100, AS NEEDED FOR PAIN TID
     Route: 048
  12. GERITOL COMPLETE [Concomitant]
     Dosage: 1 TAB DAILY
     Route: 048
  13. FISH OIL [Concomitant]
     Dosage: 1000 MG, QD
     Route: 048
  14. FOLIC ACID [Concomitant]
     Dosage: 1 MG, QD
     Route: 048
  15. TYLENOL (CAPLET) [Concomitant]
     Dosage: 2 TABS AT BEDTIME
     Route: 048

REACTIONS (3)
  - DIARRHOEA [None]
  - THROMBOCYTOPENIA [None]
  - TREMOR [None]
